FAERS Safety Report 5233726-0 (Version None)
Quarter: 2007Q1

REPORT INFORMATION
  Report Type: 
  Country: None (occurrence: None)
  Receive Date: 20061208
  Receipt Date: 20060320
  Transmission Date: 20070707
  Serious: Yes (Other)
  Sender: FDA-Public Use
  Company Number: 2006UW04796

PATIENT
  Age: 76 Year
  Sex: Female
  Weight: 60.327 kg

DRUGS (7)
  1. CRESTOR [Suspect]
     Indication: BLOOD CHOLESTEROL INCREASED
     Dosage: 5 MG PO
     Route: 048
  2. DETROL [Concomitant]
  3. ZANTAC [Concomitant]
  4. GEMFIBROZIL [Concomitant]
  5. ACCOLATE [Concomitant]
  6. EYE DROPS [Concomitant]
  7. NASONEX [Concomitant]

REACTIONS (1)
  - DIARRHOEA [None]
